FAERS Safety Report 9457375 (Version 1)
Quarter: 2013Q3

REPORT INFORMATION
  Report Type: Report from Study
  Country: BR (occurrence: BR)
  Receive Date: 20130814
  Receipt Date: 20130814
  Transmission Date: 20140515
  Serious: Yes (Hospitalization, Other)
  Sender: FDA-Public Use
  Company Number: PHHY2013BR087176

PATIENT
  Sex: Female

DRUGS (5)
  1. FORASEQ [Suspect]
     Indication: ASTHMA
     Dosage: 1 DF, Q8H (1 CAPSULE OF EACH TREATMENT, EVERY 8 HOURS)
  2. FORASEQ [Suspect]
     Dosage: UNK UKN, UNK
  3. SERETIDE [Suspect]
     Indication: ASTHMA
     Dosage: UNK UKN, UNK
  4. SPIRIVA [Suspect]
     Indication: ASTHMA
     Dosage: UNK UKN, UNK
  5. ALENIA /01538101/ [Suspect]
     Indication: ASTHMA
     Dosage: UNK UKN, UNK

REACTIONS (3)
  - Nasopharyngitis [Not Recovered/Not Resolved]
  - Fatigue [Not Recovered/Not Resolved]
  - Anaemia [Not Recovered/Not Resolved]
